APPROVED DRUG PRODUCT: AMMONIA N 13
Active Ingredient: AMMONIA N-13
Strength: 3.75mCi-260mCi/ML
Dosage Form/Route: INJECTABLE;INTRAVENOUS
Application: A215083 | Product #001 | TE Code: AP
Applicant: THE METHODIST HOSP RESEARCH INSTITUTE
Approved: Jul 9, 2021 | RLD: No | RS: No | Type: RX